FAERS Safety Report 8046591-3 (Version None)
Quarter: 2012Q1

REPORT INFORMATION
  Report Type: 
  Country: None (occurrence: None)
  Receive Date: 20120113
  Receipt Date: 20120105
  Transmission Date: 20120608
  Serious: Yes (Hospitalization)
  Sender: FDA-Public Use
  Company Number: FR-ROCHE-1028111

PATIENT
  Sex: Male

DRUGS (11)
  1. VALGANCICLOVIR [Suspect]
     Indication: CYTOMEGALOVIRUS INFECTION
     Route: 048
     Dates: end: 20111205
  2. MYCOPHENOLATE MOFETIL (CELLCEPT) [Suspect]
     Indication: LUNG TRANSPLANT
     Route: 042
  3. BACTRIM FORTE IM ROCHE [Concomitant]
     Dosage: 1 TABLET
  4. VIRAZOLE [Suspect]
     Indication: RESPIRATORY SYNCYTIAL VIRUS INFECTION
     Route: 042
     Dates: start: 20111202, end: 20111204
  5. GANCICLOVIR SODIUM [Suspect]
     Indication: CYTOMEGALOVIRUS INFECTION
     Route: 042
     Dates: start: 20111205, end: 20111208
  6. PROGRAF [Concomitant]
  7. CACIT [Concomitant]
  8. NEXIUM [Concomitant]
  9. VALGANCICLOVIR [Concomitant]
  10. PREDNISONE TAB [Concomitant]
  11. ZITHROMAX [Concomitant]

REACTIONS (8)
  - APLASIA [None]
  - ESCHERICHIA URINARY TRACT INFECTION [None]
  - FISTULA [None]
  - DIABETES MELLITUS [None]
  - BRONCHITIS [None]
  - SUPERINFECTION [None]
  - HAEMODIALYSIS [None]
  - TOXICITY TO VARIOUS AGENTS [None]
